FAERS Safety Report 20661405 (Version 1)
Quarter: 2022Q2

REPORT INFORMATION
  Report Type: Spontaneous
  Country: FR (occurrence: FR)
  Receive Date: 20220401
  Receipt Date: 20220401
  Transmission Date: 20220721
  Serious: Yes (Other)
  Sender: FDA-Public Use
  Company Number: FR-AFSSAPS-TS20220933

PATIENT
  Age: 82 Year
  Sex: Male
  Weight: 63 kg

DRUGS (2)
  1. CLOPIDOGREL [Interacting]
     Active Substance: CLOPIDOGREL BISULFATE
     Indication: Peripheral arterial occlusive disease
     Dosage: 75 MILLIGRAM, ONCE A DAY
     Route: 048
     Dates: end: 20220214
  2. ELIQUIS [Interacting]
     Active Substance: APIXABAN
     Indication: Atrial fibrillation
     Dosage: 2 DOSAGE FORM, ONCE A DAY
     Route: 048
     Dates: end: 20220209

REACTIONS (1)
  - Subgaleal haematoma [Recovering/Resolving]

NARRATIVE: CASE EVENT DATE: 20220209
